FAERS Safety Report 7293017-3 (Version None)
Quarter: 2011Q1

REPORT INFORMATION
  Report Type: 
  Country: None (occurrence: None)
  Receive Date: 20110215
  Receipt Date: 20110209
  Transmission Date: 20110831
  Serious: Yes (Disabling)
  Sender: FDA-Public Use
  Company Number: FR-ROCHE-729754

PATIENT
  Sex: Female
  Weight: 95 kg

DRUGS (3)
  1. BEVACIZUMAB [Suspect]
     Dosage: DOSE AND FREQUENCY TAKEN AS PER PROTOCOL. REPORTED DOSE: 625, FREQUENCY: ON DAY 1 EVERY 3 WEEKS.
     Route: 042
     Dates: start: 20080911
  2. PACLITAXEL [Suspect]
     Dosage: DOSE REPORTED AS ^300^. FREQUENCY: OVER 3 HOURS. FORM: INFUSION.
     Route: 042
     Dates: start: 20080911
  3. CARBOPLATIN [Suspect]
     Dosage: DOSE REPORTED ^530^ AND AUC 6L OVER 30-60 MINUTES AS PER PROTOCOL.
     Route: 042
     Dates: start: 20080911

REACTIONS (1)
  - INCISIONAL HERNIA [None]
